FAERS Safety Report 12127209 (Version 1)
Quarter: 2016Q1

REPORT INFORMATION
  Report Type: Report from Study
  Country: BR (occurrence: BR)
  Receive Date: 20160229
  Receipt Date: 20160229
  Transmission Date: 20160526
  Serious: Yes (Death)
  Sender: FDA-Public Use
  Company Number: PHHY2016BR026266

PATIENT
  Sex: Female
  Weight: 99 kg

DRUGS (2)
  1. SELOZOK [Concomitant]
     Active Substance: METOPROLOL SUCCINATE
     Indication: BLOOD PRESSURE ABNORMAL
     Dosage: 1 DF, QD (1 TABLET AT NIGHT)
     Route: 048
  2. DIOVAN HCT [Suspect]
     Active Substance: HYDROCHLOROTHIAZIDE\VALSARTAN
     Indication: BLOOD PRESSURE ABNORMAL
     Dosage: 1 DF (320 MG OF VALSARTAN AND 12.5 MG OF HYDROCHLOROTHIAZIDE), BID (1 TABLET IN THE MORNING AND 1 T)
     Route: 048

REACTIONS (1)
  - Ovarian cancer [Fatal]
